FAERS Safety Report 16069823 (Version 1)
Quarter: 2019Q1

REPORT INFORMATION
  Report Type: Spontaneous
  Country: US (occurrence: US)
  Receive Date: 20190314
  Receipt Date: 20190314
  Transmission Date: 20190418
  Serious: Yes (Death, Hospitalization, Other)
  Sender: FDA-Public Use
  Company Number: US-JNJFOC-20190308546

PATIENT
  Age: 35 Year
  Sex: Female
  Weight: 68.04 kg

DRUGS (1)
  1. IMODIUM [Suspect]
     Active Substance: LOPERAMIDE HYDROCHLORIDE
     Indication: WITHDRAWAL SYNDROME
     Route: 065
     Dates: start: 2017

REACTIONS (7)
  - Death [Fatal]
  - Ear haemorrhage [Unknown]
  - Mouth haemorrhage [Unknown]
  - Epistaxis [Unknown]
  - Off label use [Unknown]
  - Product use in unapproved indication [Unknown]
  - Overdose [Unknown]

NARRATIVE: CASE EVENT DATE: 2017
